FAERS Safety Report 5112556-4 (Version None)
Quarter: 2006Q3

REPORT INFORMATION
  Report Type: 
  Country: None (occurrence: None)
  Receive Date: 20060922
  Receipt Date: 20060911
  Transmission Date: 20061208
  Serious: Yes (Other)
  Sender: FDA-Public Use
  Company Number: GB-ABBOTT-06P-167-0343751-00

PATIENT
  Age: 71 Year
  Sex: Female
  Weight: 97.4 kg

DRUGS (9)
  1. SIBUTRAMINE [Suspect]
     Indication: OBESITY
     Route: 048
     Dates: start: 20060501, end: 20060623
  2. ATENOLOL [Concomitant]
     Indication: DIABETES MELLITUS
     Route: 048
  3. ATENOLOL [Concomitant]
     Indication: HYPERTENSION
  4. GLICAZIDE [Concomitant]
     Indication: DIABETES MELLITUS
     Route: 048
  5. GLICAZIDE [Concomitant]
     Indication: HYPERTENSION
  6. ROSIGLITAZONE [Concomitant]
     Indication: DIABETES MELLITUS
     Route: 048
  7. ROSIGLITAZONE [Concomitant]
     Indication: HYPERTENSION
  8. SIMVASTATIN [Concomitant]
     Indication: DIABETES MELLITUS
     Route: 048
  9. SIMVASTATIN [Concomitant]
     Indication: HYPERTENSION

REACTIONS (5)
  - BODY MASS INDEX INCREASED [None]
  - CLUMSINESS [None]
  - DIABETES MELLITUS [None]
  - HYPERTENSION [None]
  - NERVOUSNESS [None]
